FAERS Safety Report 18530503 (Version 1)
Quarter: 2020Q4

REPORT INFORMATION
  Report Type: Spontaneous
  Country: JP (occurrence: JP)
  Receive Date: 20201121
  Receipt Date: 20201121
  Transmission Date: 20210114
  Serious: Yes (Hospitalization, Other)
  Sender: FDA-Public Use
  Company Number: JP-MICRO LABS LIMITED-ML2020-03448

PATIENT
  Age: 82 Year
  Sex: Male

DRUGS (14)
  1. FOSPHENYTOIN SODIUM HYDRATE [Suspect]
     Active Substance: FOSPHENYTOIN SODIUM HEPTAHYDRATE
     Indication: EPILEPSY
  2. WARFARIN [Concomitant]
     Active Substance: WARFARIN
  3. LEVETIRACETAM. [Suspect]
     Active Substance: LEVETIRACETAM
  4. TAMSULOSIN [Concomitant]
     Active Substance: TAMSULOSIN
  5. AZOSEMIDE [Concomitant]
     Active Substance: AZOSEMIDE
  6. URSODEOXYCHOLIC ACID [Concomitant]
     Active Substance: URSODIOL
  7. SODIUM VALPROATE [Suspect]
     Active Substance: VALPROATE SODIUM
     Indication: EPILEPSY
  8. LEVETIRACETAM. [Suspect]
     Active Substance: LEVETIRACETAM
     Dosage: IN EVENING (DAY 19)
     Route: 048
  9. ZONISAMIDE. [Suspect]
     Active Substance: ZONISAMIDE
     Indication: EPILEPSY
  10. LEVETIRACETAM. [Suspect]
     Active Substance: LEVETIRACETAM
     Indication: EPILEPSY
     Route: 048
  11. DIAZEPAM. [Suspect]
     Active Substance: DIAZEPAM
     Indication: EPILEPSY
  12. ROSUVASTATIN CALCIUM. [Concomitant]
     Active Substance: ROSUVASTATIN CALCIUM
  13. CARBAMAZEPINE. [Suspect]
     Active Substance: CARBAMAZEPINE
     Indication: EPILEPSY
  14. LANSOPRAZOLE. [Concomitant]
     Active Substance: LANSOPRAZOLE

REACTIONS (1)
  - Altered state of consciousness [Recovered/Resolved]
